FAERS Safety Report 10564508 (Version 2)
Quarter: 2014Q4

REPORT INFORMATION
  Report Type: Spontaneous
  Country: US (occurrence: US)
  Receive Date: 20141104
  Receipt Date: 20141104
  Transmission Date: 20150529
  Serious: No
  Sender: FDA-Public Use
  Company Number: US-MALLINCKRODT-T201401954

PATIENT
  Age: 54 Year
  Sex: Male
  Weight: 90.7 kg

DRUGS (4)
  1. FENTANYL TRANSDERMAL SYSTEM [Suspect]
     Active Substance: FENTANYL
     Indication: PAIN
     Dosage: 50 UG/HR, Q 72 HOURS
     Route: 062
  2. FENTANYL TRANSDERMAL SYSTEM [Suspect]
     Active Substance: FENTANYL
     Dosage: 75 UG/HR, Q 48 HRS
     Route: 062
  3. MORPHINE [Concomitant]
     Active Substance: MORPHINE
     Indication: BREAKTHROUGH PAIN
     Dosage: 60 MG, TID
     Dates: start: 201404
  4. FENTANYL TRANSDERMAL SYSTEM [Suspect]
     Active Substance: FENTANYL
     Dosage: 100 UG/HR, Q 48 HRS
     Route: 062
     Dates: start: 201404

REACTIONS (4)
  - Inappropriate schedule of drug administration [Unknown]
  - Drug effect delayed [Not Recovered/Not Resolved]
  - Product quality control issue [Unknown]
  - Drug ineffective [Not Recovered/Not Resolved]

NARRATIVE: CASE EVENT DATE: 201404
